FAERS Safety Report 22783216 (Version 2)
Quarter: 2023Q4

REPORT INFORMATION
  Report Type: Spontaneous
  Country: DE (occurrence: DE)
  Receive Date: 20230803
  Receipt Date: 20231114
  Transmission Date: 20240110
  Serious: Yes (Hospitalization, Other)
  Sender: FDA-Public Use
  Company Number: DE-SANDOZ-SDZ2023DE004651

PATIENT
  Age: 78 Year
  Sex: Male

DRUGS (24)
  1. XGEVA [Suspect]
     Active Substance: DENOSUMAB
     Indication: Plasma cell myeloma
     Dosage: 480 MILLIGRAM, QWK (120 MG, 4W )
     Route: 058
     Dates: start: 20200831, end: 20200831
  2. REVLIMID [Suspect]
     Active Substance: LENALIDOMIDE
     Indication: Plasma cell myeloma
     Dosage: 25 MG, QD
     Route: 048
     Dates: start: 20200622, end: 20200712
  3. REVLIMID [Suspect]
     Active Substance: LENALIDOMIDE
     Dosage: 25 MG, QD
     Route: 048
     Dates: start: 20200720, end: 20200822
  4. REVLIMID [Suspect]
     Active Substance: LENALIDOMIDE
     Dosage: 10 MG, QD
     Route: 048
     Dates: start: 20200831, end: 20200920
  5. REVLIMID [Suspect]
     Active Substance: LENALIDOMIDE
     Dosage: 25 MILLIGRAM, QAM
     Route: 048
     Dates: start: 20221212, end: 20230101
  6. REVLIMID [Suspect]
     Active Substance: LENALIDOMIDE
     Dosage: 25 MILLIGRAM, QAM
     Route: 048
     Dates: start: 20230403, end: 20230423
  7. REVLIMID [Suspect]
     Active Substance: LENALIDOMIDE
     Dosage: 25 MILLIGRAM, QAM
     Route: 048
     Dates: start: 20230120, end: 20230129
  8. REVLIMID [Suspect]
     Active Substance: LENALIDOMIDE
     Dosage: 25 MILLIGRAM, QAM
     Route: 048
     Dates: start: 20230206, end: 20230226
  9. DARATUMUMAB [Suspect]
     Active Substance: DARATUMUMAB
     Indication: Plasma cell myeloma
     Dosage: 16 MILLIGRAM/KILOGRAM, Q2WK
     Route: 040
  10. DARATUMUMAB [Suspect]
     Active Substance: DARATUMUMAB
     Dosage: 224 MILLIGRAM/KILOGRAM, QD (THE DOSE OF 16 MG/KG WAS ADMINISTERED ONLY EVERY TWO WEEKS )
     Route: 040
     Dates: start: 20200824, end: 20200921
  11. DARATUMUMAB [Suspect]
     Active Substance: DARATUMUMAB
     Dosage: DISTRIBUTED OVER TWO DAYS AT 8 MG/KG EACH
     Route: 040
  12. DARATUMUMAB [Suspect]
     Active Substance: DARATUMUMAB
     Dosage: 8 MILLIGRAM/KILOGRAM, QD
     Route: 040
     Dates: start: 20200622, end: 20200623
  13. DARATUMUMAB [Suspect]
     Active Substance: DARATUMUMAB
     Dosage: 16 MILLIGRAM/KILOGRAM, QWK, THE DOSE OF 16 MG/KG WAS ADMINISTERED ONLY EVERY TWO WEEKS
     Route: 040
     Dates: start: 20200629, end: 20200810
  14. DARATUMUMAB [Suspect]
     Active Substance: DARATUMUMAB
     Dosage: 992 MILLIGRAM
     Route: 042
     Dates: start: 20230102, end: 20230327
  15. DEXAMETHASONE [Suspect]
     Active Substance: DEXAMETHASONE
     Indication: Plasma cell myeloma
     Dosage: 20 MILLIGRAM (14-DAY INTERVAL WITH OTHER CYTOSTATIC )
     Route: 048
  16. DEXAMETHASONE [Suspect]
     Active Substance: DEXAMETHASONE
     Dosage: 20 MG (0.5 WEEK)
     Route: 048
     Dates: start: 20200713, end: 20200810
  17. DEXAMETHASONE [Suspect]
     Active Substance: DEXAMETHASONE
     Dosage: 20 MG, QW
     Route: 040
     Dates: start: 20200629, end: 20200706
  18. DEXAMETHASONE [Suspect]
     Active Substance: DEXAMETHASONE
     Dosage: 40 MG, Q2W; DEXAMETHASONE 2X20 MG AT 14-DAY INTERVAL WITH OTHER CYTOSTATIC
     Route: 048
     Dates: start: 20200824, end: 20200921
  19. DEXAMETHASONE [Suspect]
     Active Substance: DEXAMETHASONE
     Dosage: 20 MG, QD
     Route: 040
     Dates: start: 20200622, end: 20200623
  20. DEXAMETHASONE [Suspect]
     Active Substance: DEXAMETHASONE
     Dosage: 20 MILLIGRAM (AT 14-DAY INTERVAL WITHOUT ANY OTHER CYTOSTATICS )
     Route: 048
  21. DEXAMETHASONE [Suspect]
     Active Substance: DEXAMETHASONE
     Dosage: 20 MG, QW
     Route: 048
     Dates: start: 20200629, end: 20200706
  22. DEXAMETHASONE [Suspect]
     Active Substance: DEXAMETHASONE
     Dosage: 20 MG, Q2W; DEXAMETHASONE 1X20 MG AT 14-DAY INTERVAL WITHOUT ANY OTHER CYTOSTATICS
     Route: 048
     Dates: start: 20200817, end: 20200921
  23. DEXAMETHASONE [Suspect]
     Active Substance: DEXAMETHASONE
     Dosage: 1 TIME PER WEEK
     Route: 048
     Dates: start: 20230103, end: 20230328
  24. DEXAMETHASONE [Suspect]
     Active Substance: DEXAMETHASONE
     Dosage: 20 MILLIGRAM, QWK
     Route: 048
     Dates: start: 20230103, end: 20230328

REACTIONS (3)
  - Cardiac failure [Recovered/Resolved]
  - Pleural effusion [Recovering/Resolving]
  - Off label use [Unknown]

NARRATIVE: CASE EVENT DATE: 20200831
